FAERS Safety Report 10346642 (Version 2)
Quarter: 2014Q3

REPORT INFORMATION
  Report Type: Report from Study
  Country: US (occurrence: US)
  Receive Date: 20140729
  Receipt Date: 20140729
  Transmission Date: 20150326
  Serious: Yes (Other)
  Sender: FDA-Public Use
  Company Number: US-BIOGENIDEC-2014BI062439

PATIENT
  Age: 36 Year
  Sex: Female

DRUGS (1)
  1. TYSABRI [Suspect]
     Active Substance: NATALIZUMAB
     Indication: MULTIPLE SCLEROSIS
     Route: 042
     Dates: start: 20101105

REACTIONS (10)
  - Hepatic steatosis [Unknown]
  - Hepatomegaly [Recovered/Resolved]
  - Abdominal pain [Not Recovered/Not Resolved]
  - Gastric disorder [Recovered/Resolved]
  - Off label use [Not Recovered/Not Resolved]
  - Hepatic enzyme increased [Unknown]
  - Urinary tract infection [Unknown]
  - Enzyme level increased [Unknown]
  - Splenomegaly [Recovered/Resolved]
  - Pain [Recovered/Resolved]

NARRATIVE: CASE EVENT DATE: 201404
